FAERS Safety Report 26137563 (Version 1)
Quarter: 2025Q4

REPORT INFORMATION
  Report Type: Spontaneous
  Country: US (occurrence: US)
  Receive Date: 20251209
  Receipt Date: 20251209
  Transmission Date: 20260117
  Serious: No
  Sender: INSUD PHARMA
  Company Number: US-INSUD PHARMA-2512US10076

PATIENT

DRUGS (2)
  1. ESTRADIOL [Suspect]
     Active Substance: ESTRADIOL
     Indication: Menopausal symptoms
     Dosage: 1 MG OF ESTRADIOL IN ONE GRAM OF GEL
     Route: 061
     Dates: start: 2025
  2. ESTRADIOL [Suspect]
     Active Substance: ESTRADIOL
     Dosage: 1 MG OF ESTRADIOL IN ONE GRAM OF GEL
     Route: 061

REACTIONS (8)
  - Hot flush [Recovering/Resolving]
  - Intermenstrual bleeding [Recovering/Resolving]
  - Rash [Recovering/Resolving]
  - Sleep disorder [Recovering/Resolving]
  - Poor quality product administered [Unknown]
  - Product quality issue [Unknown]
  - Product substitution issue [Unknown]
  - Product physical consistency issue [Unknown]

NARRATIVE: CASE EVENT DATE: 20250101
